FAERS Safety Report 8771733 (Version 1)
Quarter: 2012Q4

REPORT INFORMATION
  Report Type: 
  Country: BR (occurrence: BR)
  Receive Date: 20120906
  Receipt Date: 20120906
  Transmission Date: 20130627
  Serious: Yes (Death, Hospitalization)
  Sender: FDA-Public Use
  Company Number: BR-BAXTER-2012BAX015625

PATIENT
  Age: 27 Year
  Sex: Female
  Weight: 79 kg

DRUGS (12)
  1. HOLOXANE [Suspect]
     Indication: SYNOVIAL SARCOMA
     Route: 042
     Dates: start: 20120724, end: 20120724
  2. HOLOXANE [Suspect]
     Route: 042
     Dates: start: 20120725, end: 20120725
  3. MESNA [Concomitant]
     Indication: DRUG USE FOR UNKNOWN INDICATION
     Route: 065
     Dates: start: 20120724, end: 20120724
  4. MESNA [Concomitant]
     Route: 065
     Dates: start: 20120725, end: 20120725
  5. ONDASETRON [Concomitant]
     Indication: DRUG USE FOR UNKNOWN INDICATION
     Route: 065
  6. ENOXAPARIN [Concomitant]
     Indication: DRUG USE FOR UNKNOWN INDICATION
     Route: 065
  7. CLONAZEPAM [Concomitant]
     Indication: DRUG USE FOR UNKNOWN INDICATION
     Route: 065
  8. OMEPRAZOLE [Concomitant]
     Indication: DRUG USE FOR UNKNOWN INDICATION
     Route: 065
  9. BROMOPRIDA [Concomitant]
     Indication: DRUG USE FOR UNKNOWN INDICATION
     Route: 065
  10. HYDROCORTISONE [Concomitant]
     Indication: DRUG USE FOR UNKNOWN INDICATION
     Route: 065
  11. CODEINE [Concomitant]
     Indication: DRUG USE FOR UNKNOWN INDICATION
     Route: 065
  12. DEXAMETHASONE [Concomitant]
     Indication: DRUG USE FOR UNKNOWN INDICATION
     Route: 065

REACTIONS (3)
  - Dyspnoea [Fatal]
  - Encephalopathy [Fatal]
  - Cardio-respiratory arrest [Fatal]
